FAERS Safety Report 23379248 (Version 1)
Quarter: 2024Q1

REPORT INFORMATION
  Report Type: Spontaneous
  Country: CA (occurrence: CA)
  Receive Date: 20240108
  Receipt Date: 20240108
  Transmission Date: 20240410
  Serious: Yes (Death)
  Sender: FDA-Public Use
  Company Number: CA-FRESENIUS KABI-FK202006764

PATIENT
  Age: 55 Year
  Sex: Male

DRUGS (6)
  1. ETOPOSIDE [Suspect]
     Active Substance: ETOPOSIDE
     Indication: Acute megakaryocytic leukaemia
     Dosage: FORM OF ADMIN.- NOT SPECIFIED
  2. IDARUBICIN HYDROCHLORIDE [Suspect]
     Active Substance: IDARUBICIN HYDROCHLORIDE
     Indication: Product used for unknown indication
  3. IMATINIB [Suspect]
     Active Substance: IMATINIB
     Indication: Acute megakaryocytic leukaemia
     Dosage: FORM OF ADMIN.- NOT SPECIFIED
  4. NILOTINIB [Suspect]
     Active Substance: NILOTINIB
     Indication: Product used for unknown indication
     Dosage: FORM OF ADMIN.- CAPSULE
  5. THYMOCYTE IMMUNE GLOBULIN NOS [Suspect]
     Active Substance: THYMOCYTE IMMUNE GLOBULIN NOS
     Indication: Acute megakaryocytic leukaemia
     Dosage: FORM OF ADMIN.- INJECTION
  6. CYTARABINE [Suspect]
     Active Substance: CYTARABINE
     Indication: Acute megakaryocytic leukaemia
     Dosage: FORM OF ADMIN.- POWDER FOR SOLUTION INTRATHECAL

REACTIONS (4)
  - Fungal infection [Fatal]
  - Intentional product use issue [Fatal]
  - Neoplasm progression [Fatal]
  - Off label use [Fatal]
